FAERS Safety Report 5340821-4 (Version None)
Quarter: 2007Q2

REPORT INFORMATION
  Report Type: 
  Country: None (occurrence: None)
  Receive Date: 20070405
  Receipt Date: 20070109
  Transmission Date: 20071010
  Serious: Yes (Death)
  Sender: FDA-Public Use
  Company Number: US200608001804

PATIENT
  Age: 25 Year
  Sex: Female
  Weight: 47.6 kg

DRUGS (2)
  1. CYMBALTA [Suspect]
     Indication: ANXIETY
     Dosage: 60 MG
     Dates: start: 20060416
  2. WELLBUTRIN [Concomitant]

REACTIONS (3)
  - BLOOD PROLACTIN INCREASED [None]
  - COMPLETED SUICIDE [None]
  - FEELING ABNORMAL [None]
